FAERS Safety Report 9963959 (Version 2)
Quarter: 2014Q1

REPORT INFORMATION
  Report Type: Spontaneous
  Country: GB (occurrence: GB)
  Receive Date: 20140305
  Receipt Date: 20140305
  Transmission Date: 20141002
  Serious: Yes (Other)
  Sender: FDA-Public Use
  Company Number: GB-ABBVIE-13P-167-1180535-00

PATIENT
  Age: 66 Year
  Sex: Female
  Weight: 64.4 kg

DRUGS (19)
  1. HUMIRA [Suspect]
     Indication: RHEUMATOID ARTHRITIS
     Route: 065
  2. ZOPICLONE [Concomitant]
     Indication: PRODUCT USED FOR UNKNOWN INDICATION
     Dosage: ONE TO BE TAKEN AT NIGHT
  3. CLOTRIMAZOLE [Concomitant]
     Indication: PRODUCT USED FOR UNKNOWN INDICATION
     Dosage: APPLY TWICE A DAY
  4. TRIMETHOPRIM [Concomitant]
     Indication: PRODUCT USED FOR UNKNOWN INDICATION
     Dosage: ONE TO BE TAKEN TWICE A DAY
  5. ACICLOVIR [Concomitant]
     Indication: PRODUCT USED FOR UNKNOWN INDICATION
     Dosage: ONE TO BE TAKEN FIVE TIMES A DAY
  6. PREDNISOLONE [Concomitant]
     Indication: PRODUCT USED FOR UNKNOWN INDICATION
     Dosage: 2 DAILY
  7. PREDNISOLONE [Concomitant]
     Dosage: (+2.5MG TAB = 7.5MG DAILY)
  8. ALENDRONIC ACID [Concomitant]
     Indication: PRODUCT USED FOR UNKNOWN INDICATION
     Dosage: ONE TO BE TAKEN ON SAME DAY EACH WEEK
  9. ADCAL D3 [Concomitant]
     Indication: PRODUCT USED FOR UNKNOWN INDICATION
     Dosage: 2 CHEWABLE TABLETS PER DAY
  10. ARTELAC [Concomitant]
     Indication: PRODUCT USED FOR UNKNOWN INDICATION
  11. LANSOPRAZOLE [Concomitant]
     Indication: PRODUCT USED FOR UNKNOWN INDICATION
     Dosage: ONE OR TWO TO BE TAKEN EACH MORNING
  12. USODEOXYCHOLIC ACID 250MG CAPSULES [Concomitant]
     Indication: PRODUCT USED FOR UNKNOWN INDICATION
     Dosage: TAKE TWO CAPSULES DAILY
  13. LAXIDO [Concomitant]
     Indication: PRODUCT USED FOR UNKNOWN INDICATION
  14. SOTALOL [Concomitant]
     Indication: PRODUCT USED FOR UNKNOWN INDICATION
     Dosage: ONE TO BE TAKEN TWICE A DAY
  15. PREDNISOLONE [Concomitant]
     Indication: PRODUCT USED FOR UNKNOWN INDICATION
     Dosage: 1 EACH MORNING WITH 5MG TAB (=7.5MG DAILY)
  16. CATACROM [Concomitant]
     Indication: PRODUCT USED FOR UNKNOWN INDICATION
     Dosage: 1 OR 2 DROPS INTO THE AFFECTED EYE(S)
  17. CO-CODAMOL [Concomitant]
     Indication: PRODUCT USED FOR UNKNOWN INDICATION
     Dosage: 1 NIGHTLY OR UP TO 2-4 TIMES A DAY
  18. ASPIRIN [Concomitant]
     Indication: PRODUCT USED FOR UNKNOWN INDICATION
     Dosage: ONE TO BE TAKEN EACH DAY
  19. ACICLOVIR [Concomitant]
     Indication: HERPES ZOSTER
     Dosage: *5
     Route: 048
     Dates: start: 20140129, end: 20140205

REACTIONS (10)
  - Visual acuity reduced [Unknown]
  - Dry eye [Recovered/Resolved]
  - Oropharyngeal pain [Unknown]
  - Nasopharyngitis [Unknown]
  - Conjunctivitis [Unknown]
  - Infection susceptibility increased [Unknown]
  - Cellulitis [Recovered/Resolved]
  - Cataract [Unknown]
  - Myopia [Unknown]
  - Ocular hyperaemia [Recovered/Resolved]
